FAERS Safety Report 5678267-1 (Version None)
Quarter: 2008Q1

REPORT INFORMATION
  Report Type: 
  Country: None (occurrence: None)
  Receive Date: 20080319
  Receipt Date: 20080305
  Transmission Date: 20080703
  Serious: No
  Sender: FDA-Public Use
  Company Number: 000253

PATIENT
  Age: 93 Year
  Sex: Male

DRUGS (1)
  1. PLETAAL (CILOSTAZOL) POWDER [Suspect]
     Indication: ARTERIOSCLEROSIS OBLITERANS
     Dosage: ORAL
     Route: 048

REACTIONS (1)
  - CARDIAC FAILURE [None]
